FAERS Safety Report 6092965-X (Version None)
Quarter: 2009Q1

REPORT INFORMATION
  Report Type: 
  Country: None (occurrence: None)
  Receive Date: 20090224
  Receipt Date: 20090210
  Transmission Date: 20090719
  Serious: Yes (Death)
  Sender: FDA-Public Use
  Company Number: 2009-0002

PATIENT
  Age: 30 Year
  Sex: Female

DRUGS (2)
  1. SEROQUEL [Suspect]
  2. PROZAC [Suspect]

REACTIONS (6)
  - BIPOLAR I DISORDER [None]
  - DEPRESSION [None]
  - EATING DISORDER [None]
  - MARITAL PROBLEM [None]
  - OBSESSIVE THOUGHTS [None]
  - OVERDOSE [None]
